FAERS Safety Report 10736164 (Version 1)
Quarter: 2015Q1

REPORT INFORMATION
  Report Type: Spontaneous
  Country: US (occurrence: None)
  Receive Date: 20150122
  Receipt Date: 20150122
  Transmission Date: 20150721
  Serious: No
  Sender: FDA-Public Use
  Company Number: None

PATIENT
  Age: 71 Year
  Sex: Male
  Weight: 88.45 kg

DRUGS (1)
  1. VALSARTAN 160 MG OHM [Suspect]
     Active Substance: VALSARTAN
     Indication: HYPERTENSION
     Dosage: 1 PILL
     Route: 048
     Dates: start: 20150116, end: 20150117

REACTIONS (2)
  - Blood pressure systolic increased [None]
  - Product substitution issue [None]

NARRATIVE: CASE EVENT DATE: 20150117
